FAERS Safety Report 5671490-1 (Version None)
Quarter: 2008Q1

REPORT INFORMATION
  Report Type: 
  Country: None (occurrence: None)
  Receive Date: 20080318
  Receipt Date: 20080225
  Transmission Date: 20080703
  Serious: No
  Sender: FDA-Public Use
  Company Number: US-BOEHRINGER INGELHEIM GMBH, GERMANY-2008-BP-01311BP

PATIENT
  Sex: Male
  Weight: 84 kg

DRUGS (8)
  1. CATAPRES-TTS-1 [Suspect]
     Route: 061
  2. SYNTHROID [Concomitant]
  3. NEXXIUM [Concomitant]
  4. AMLODIPINE [Concomitant]
  5. AVAPRO [Concomitant]
  6. FUROSEMIDE [Concomitant]
  7. LIPITOR [Concomitant]
  8. COREG [Concomitant]

REACTIONS (3)
  - APPLICATION SITE ERYTHEMA [None]
  - APPLICATION SITE PRURITUS [None]
  - APPLICATION SITE RASH [None]
